FAERS Safety Report 23036256 (Version 2)
Quarter: 2023Q4

REPORT INFORMATION
  Report Type: Spontaneous
  Country: US (occurrence: US)
  Receive Date: 20231006
  Receipt Date: 20231013
  Transmission Date: 20240110
  Serious: No
  Sender: FDA-Public Use
  Company Number: US-ABBVIE-5439395

PATIENT
  Sex: Female

DRUGS (1)
  1. IMBRUVICA [Suspect]
     Active Substance: IBRUTINIB
     Indication: Product used for unknown indication
     Dosage: START DATE - 2023
     Route: 048
     Dates: end: 20231004

REACTIONS (3)
  - Eye infection [Unknown]
  - Hypoacusis [Unknown]
  - Dacryostenosis acquired [Unknown]
